FAERS Safety Report 15366975 (Version 1)
Quarter: 2018Q3

REPORT INFORMATION
  Report Type: Spontaneous
  Country: US (occurrence: US)
  Receive Date: 20180903
  Receipt Date: 20180903
  Transmission Date: 20181010
  Serious: Yes (Disabling)
  Sender: FDA-Public Use
  Company Number: None

PATIENT
  Age: 51 Year
  Sex: Female
  Weight: 57.15 kg

DRUGS (5)
  1. TYLENOL [Concomitant]
     Active Substance: ACETAMINOPHEN
  2. DUPIXENT [Suspect]
     Active Substance: DUPILUMAB
     Indication: ECZEMA
     Dosage: ?          QUANTITY:1 INJECTION(S);OTHER FREQUENCY:EVERY TWO WEEKS;?
     Route: 058
     Dates: start: 20180423, end: 20180514
  3. ZOLPIDEM [Concomitant]
     Active Substance: ZOLPIDEM\ZOLPIDEM TARTRATE
  4. METHYLPRENDISOLONE [Concomitant]
  5. MELOXICAM. [Concomitant]
     Active Substance: MELOXICAM

REACTIONS (10)
  - Impaired work ability [None]
  - Muscular weakness [None]
  - Insomnia [None]
  - Myalgia [None]
  - Pain in extremity [None]
  - Serum sickness [None]
  - Sensory disturbance [None]
  - Joint stiffness [None]
  - Weight bearing difficulty [None]
  - Musculoskeletal stiffness [None]

NARRATIVE: CASE EVENT DATE: 20180518
